FAERS Safety Report 8037097-6 (Version None)
Quarter: 2012Q1

REPORT INFORMATION
  Report Type: 
  Country: None (occurrence: None)
  Receive Date: 20120111
  Receipt Date: 20120105
  Transmission Date: 20120608
  Serious: Yes (Other)
  Sender: FDA-Public Use
  Company Number: GB-GLAXOSMITHKLINE-B0764350A

PATIENT
  Sex: Male

DRUGS (7)
  1. REQUIP [Suspect]
     Indication: PARKINSON'S DISEASE
     Dosage: 3MG FOUR TIMES PER DAY
     Route: 048
     Dates: start: 20110901
  2. METHOTREXATE [Concomitant]
     Indication: PSORIATIC ARTHROPATHY
     Dosage: 12.5MG WEEKLY
  3. FLUTICASONE PROPIONATE [Concomitant]
     Indication: SEASONAL ALLERGY
  4. CETIRIZINE [Concomitant]
     Indication: SEASONAL ALLERGY
     Dosage: 10MG PER DAY
  5. ADALIMUMAB [Concomitant]
     Indication: PSORIATIC ARTHROPATHY
     Dosage: 40MG EVERY TWO WEEKS
  6. ATORVASTATIN [Concomitant]
     Indication: BLOOD CHOLESTEROL DECREASED
     Dosage: 20MG AT NIGHT
  7. RYNACROM [Concomitant]
     Indication: SEASONAL ALLERGY

REACTIONS (6)
  - PARKINSON'S DISEASE [None]
  - TREMOR [None]
  - DRUG LEVEL FLUCTUATING [None]
  - DYSPHONIA [None]
  - MOVEMENT DISORDER [None]
  - DRUG INEFFECTIVE [None]
